FAERS Safety Report 11886589 (Version 3)
Quarter: 2016Q1

REPORT INFORMATION
  Report Type: Report from Study
  Country: TW (occurrence: TW)
  Receive Date: 20160104
  Receipt Date: 20160321
  Transmission Date: 20160526
  Serious: Yes (Death, Hospitalization)
  Sender: FDA-Public Use
  Company Number: TW-ABBVIE-15K-153-1510453-00

PATIENT
  Age: 79 Year
  Sex: Male
  Weight: 70 kg

DRUGS (3)
  1. MOBIC [Concomitant]
     Active Substance: MELOXICAM
     Indication: PRODUCT USED FOR UNKNOWN INDICATION
     Dates: start: 20130702, end: 20151204
  2. HUMIRA [Suspect]
     Active Substance: ADALIMUMAB
     Indication: PSORIATIC ARTHROPATHY
     Route: 058
     Dates: start: 20140604, end: 20151113
  3. MTX [Concomitant]
     Active Substance: METHOTREXATE SODIUM
     Indication: PSORIATIC ARTHROPATHY
     Dosage: 2.5/QW135, DAILY DOSE 7.5 MG
     Route: 048
     Dates: start: 20130702, end: 20151104

REACTIONS (3)
  - Pneumonia [Not Recovered/Not Resolved]
  - Pulmonary hilar enlargement [Unknown]
  - Hepatic cancer [Fatal]

NARRATIVE: CASE EVENT DATE: 20151124
